FAERS Safety Report 8194340-0 (Version None)
Quarter: 2012Q1

REPORT INFORMATION
  Report Type: 
  Country: None (occurrence: None)
  Receive Date: 20120308
  Receipt Date: 20120301
  Transmission Date: 20120608
  Serious: No
  Sender: FDA-Public Use
  Company Number: US-PFIZER INC-2012058108

PATIENT
  Sex: Female

DRUGS (2)
  1. INDERAL LA [Suspect]
     Indication: MITRAL VALVE PROLAPSE
     Dosage: UNK
  2. INDERAL LA [Suspect]
     Indication: PALPITATIONS

REACTIONS (4)
  - FATIGUE [None]
  - PRODUCT TASTE ABNORMAL [None]
  - TONGUE DRY [None]
  - DIZZINESS [None]
